FAERS Safety Report 23585856 (Version 2)
Quarter: 2024Q2

REPORT INFORMATION
  Report Type: Spontaneous
  Country: US (occurrence: US)
  Receive Date: 20240301
  Receipt Date: 20240411
  Transmission Date: 20240716
  Serious: No
  Sender: FDA-Public Use
  Company Number: US-PFIZER INC-202400037191

PATIENT
  Age: 21 Year
  Sex: Female
  Weight: 81.65 kg

DRUGS (1)
  1. DEPO-PROVERA [Suspect]
     Active Substance: MEDROXYPROGESTERONE ACETATE
     Indication: Contraception
     Dosage: 104 MG, EVERY 3 MONTHS (EVERY 90 DAYS)

REACTIONS (2)
  - Device connection issue [Unknown]
  - Device leakage [Unknown]
